FAERS Safety Report 6933069-0 (Version None)
Quarter: 2010Q3

REPORT INFORMATION
  Report Type: 
  Country: None (occurrence: None)
  Receive Date: 20100819
  Receipt Date: 20100806
  Transmission Date: 20110219
  Serious: Yes (Hospitalization)
  Sender: FDA-Public Use
  Company Number: BE-ABBOTT-10P-013-0642068-00

PATIENT
  Sex: Female

DRUGS (3)
  1. HUMIRA [Suspect]
     Indication: PSORIATIC ARTHROPATHY
     Dates: start: 20071113
  2. METHOTREXATE [Concomitant]
     Indication: PSORIATIC ARTHROPATHY
     Dosage: 15MG/WEEK
     Dates: start: 20030101
  3. CELEBREX [Concomitant]
     Indication: PSORIATIC ARTHROPATHY
     Dosage: 200MG DAILY
     Dates: start: 20030101

REACTIONS (1)
  - NEURALGIA [None]
